FAERS Safety Report 11715133 (Version 2)
Quarter: 2015Q4

REPORT INFORMATION
  Report Type: Spontaneous
  Country: FR (occurrence: FR)
  Receive Date: 20151109
  Receipt Date: 20151113
  Transmission Date: 20160304
  Serious: Yes (Other)
  Sender: FDA-Public Use
  Company Number: FR-TEVA-606036ISR

PATIENT
  Age: 68 Year
  Sex: Male

DRUGS (15)
  1. ACTISKENAN [Concomitant]
     Active Substance: MORPHINE SULFATE
  2. ETOPOSIDE TEVA [Suspect]
     Active Substance: ETOPOSIDE
     Dosage: 200 MILLIGRAM DAILY; DAY 2 AND DAY 3 OF R-ICE PROTOCOL
     Route: 041
     Dates: start: 20150915, end: 20150916
  3. MABTHERA [Suspect]
     Active Substance: RITUXIMAB
     Dosage: ONE INTAKE - DAY 1 OF R-ICE PROTOCOL
     Route: 041
     Dates: start: 20150914
  4. ACUPAN [Concomitant]
     Active Substance: NEFOPAM HYDROCHLORIDE
     Dates: end: 20150917
  5. QUESTRAN [Concomitant]
     Active Substance: CHOLESTYRAMINE
     Dates: end: 20150917
  6. FORLAX [Concomitant]
     Active Substance: POLYETHYLENE GLYCOL 4000
  7. IMIPENEM / CILASTATINE [Concomitant]
  8. CARBOPLATINE KABI 10 MG/ML [Suspect]
     Active Substance: CARBOPLATIN
     Dosage: ONE INTAKE - DAY 2 OF R-ICE PROTOCOL
     Route: 041
     Dates: start: 20150915
  9. FASTURTEC [Concomitant]
     Active Substance: RASBURICASE
  10. DEBRIDAT [Concomitant]
     Active Substance: TRIMEBUTINE MALEATE
  11. IFOSFAMIDE EG [Suspect]
     Active Substance: IFOSFAMIDE
     Dosage: ONE INTAKE - DAY 3 OF R-ICE PROTOCOL
     Route: 041
     Dates: start: 20150916
  12. XANAX [Concomitant]
     Active Substance: ALPRAZOLAM
     Dates: end: 20150917
  13. UROMITEXAN [Suspect]
     Active Substance: MESNA
     Dosage: 8 GRAM DAILY; DAY 3 TO DAY 8 OF R-ICE PROTOCOL
     Route: 041
     Dates: start: 20150916, end: 20150921
  14. SKENAN [Concomitant]
     Active Substance: MORPHINE SULFATE
  15. CIPROFLOXACINE [Concomitant]
     Active Substance: CIPROFLOXACIN

REACTIONS (5)
  - Confusional state [Unknown]
  - Delirium [Unknown]
  - Hypoalbuminaemia [Unknown]
  - Encephalopathy [Recovered/Resolved]
  - Liver disorder [Unknown]

NARRATIVE: CASE EVENT DATE: 20150917
